FAERS Safety Report 8834494 (Version 1)
Quarter: 2012Q4

REPORT INFORMATION
  Report Type: 
  Country: US (occurrence: US)
  Receive Date: 20121010
  Receipt Date: 20121010
  Transmission Date: 20130627
  Serious: Yes (Death, Other)
  Sender: FDA-Public Use
  Company Number: US-ARROW-2012-17091

PATIENT
  Age: 16 Year
  Sex: Female

DRUGS (5)
  1. PREDNISONE (WATSON LABORATORIES) [Suspect]
     Indication: SYSTEMIC LUPUS ERYTHEMATOSUS
     Dosage: 20 mg, daily
     Route: 065
  2. IMURAN                             /00001501/ [Suspect]
     Indication: SYSTEMIC LUPUS ERYTHEMATOSUS
     Dosage: 125 mg, daily
     Route: 065
  3. PLAQUENIL                          /00072602/ [Suspect]
     Indication: SYSTEMIC LUPUS ERYTHEMATOSUS
     Dosage: 300 mg, daily
     Route: 065
  4. METHYLPREDNISOLONE [Suspect]
     Indication: SYSTEMIC LUPUS ERYTHEMATOSUS
     Dosage: 25 mg, q8h
     Route: 042
  5. CYTOXAN [Suspect]
     Indication: SYSTEMIC LUPUS ERYTHEMATOSUS
     Dosage: 10 mg/kg, 2/week
     Route: 042

REACTIONS (6)
  - Acanthamoeba infection [Fatal]
  - Encephalitis [Fatal]
  - Brain oedema [None]
  - Central nervous system necrosis [Fatal]
  - Brain herniation [Fatal]
  - Coma [Fatal]
